FAERS Safety Report 12703787 (Version 4)
Quarter: 2017Q1

REPORT INFORMATION
  Report Type: Spontaneous
  Country: IT (occurrence: IT)
  Receive Date: 20160831
  Receipt Date: 20170227
  Transmission Date: 20170428
  Serious: Yes (Hospitalization)
  Sender: FDA-Public Use
  Company Number: IT-JNJFOC-20160822493

PATIENT
  Age: 73 Year
  Sex: Female
  Weight: 66 kg

DRUGS (4)
  1. YONDELIS [Suspect]
     Active Substance: TRABECTEDIN
     Indication: OVARIAN CANCER METASTATIC
     Route: 042
     Dates: start: 20160315, end: 20160714
  2. ALMARYTM [Concomitant]
     Active Substance: FLECAINIDE ACETATE
     Indication: TACHYARRHYTHMIA
     Route: 065
  3. CAELYX [Suspect]
     Active Substance: DOXORUBICIN HYDROCHLORIDE
     Indication: OVARIAN CANCER METASTATIC
     Dosage: THE DRUG WAS ADMINISTERED IN CYCLES.
     Route: 042
     Dates: start: 20160315, end: 20160714
  4. CONGESCOR [Concomitant]
     Active Substance: BISOPROLOL
     Indication: PRODUCT USED FOR UNKNOWN INDICATION
     Route: 065

REACTIONS (2)
  - Blood creatinine increased [Recovered/Resolved]
  - Interstitial lung disease [Recovered/Resolved]

NARRATIVE: CASE EVENT DATE: 20160630
